FAERS Safety Report 6867811-4 (Version None)
Quarter: 2010Q3

REPORT INFORMATION
  Report Type: 
  Country: None (occurrence: None)
  Receive Date: 20100722
  Receipt Date: 20100708
  Transmission Date: 20110219
  Serious: Yes (Other)
  Sender: FDA-Public Use
  Company Number: US-SANOFI-AVENTIS-2010SA040600

PATIENT
  Age: 71 Year
  Sex: Female

DRUGS (4)
  1. MULTAQ [Suspect]
     Indication: ATRIAL FIBRILLATION
     Route: 048
     Dates: start: 20100101
  2. SINGULAIR [Concomitant]
  3. COUMADIN [Concomitant]
  4. DIGOXIN [Concomitant]

REACTIONS (4)
  - ATRIAL FIBRILLATION [None]
  - BLOOD PRESSURE DIASTOLIC INCREASED [None]
  - DYSSTASIA [None]
  - HEART RATE INCREASED [None]
